FAERS Safety Report 17929146 (Version 1)
Quarter: 2020Q2

REPORT INFORMATION
  Report Type: Spontaneous
  Country: US (occurrence: US)
  Receive Date: 20200622
  Receipt Date: 20200622
  Transmission Date: 20200714
  Serious: Yes (Hospitalization)
  Sender: FDA-Public Use
  Company Number: None

PATIENT
  Age: 33 Year
  Sex: Female

DRUGS (20)
  1. ALBUTEROL NEB [Concomitant]
     Active Substance: ALBUTEROL
  2. HYDROCO/APAP [Concomitant]
     Active Substance: ACETAMINOPHEN\HYDROCODONE
  3. CEFDINIR. [Concomitant]
     Active Substance: CEFDINIR
  4. ESTARYLLA [Concomitant]
     Active Substance: ETHINYL ESTRADIOL\NORGESTIMATE
  5. VENTOLIN HFA [Concomitant]
     Active Substance: ALBUTEROL SULFATE
  6. NEOMYCIN. [Concomitant]
     Active Substance: NEOMYCIN
  7. DICYCLOMINE [Concomitant]
     Active Substance: DICYCLOMINE HYDROCHLORIDE
  8. PROCTOZONE CRE [Concomitant]
  9. AZITHROMYCIN ANHYDROUS. [Concomitant]
     Active Substance: AZITHROMYCIN ANHYDROUS
  10. FLUCONAZOLE. [Concomitant]
     Active Substance: FLUCONAZOLE
  11. METAXALONE. [Concomitant]
     Active Substance: METAXALONE
  12. METRONIDAZOL [Concomitant]
     Active Substance: METRONIDAZOLE
  13. PROCTOZONE CRE [Concomitant]
  14. STELARA [Suspect]
     Active Substance: USTEKINUMAB
     Indication: CROHN^S DISEASE
     Dosage: ?          OTHER FREQUENCY:Q4WK; DOSE; SYR?
     Route: 058
     Dates: start: 20191220
  15. MONTELUKAST [Concomitant]
     Active Substance: MONTELUKAST SODIUM
  16. ONDANSETRON [Concomitant]
     Active Substance: ONDANSETRON
  17. PREDNISONE. [Concomitant]
     Active Substance: PREDNISONE
  18. AMOX/K CLAV [Concomitant]
     Active Substance: AMOXICILLIN\CLAVULANATE POTASSIUM
  19. CYANOCOBALAM [Concomitant]
     Active Substance: CYANOCOBALAMIN
  20. TRIAM/HCTZ [Concomitant]
     Active Substance: HYDROCHLOROTHIAZIDE\TRIAMTERENE

REACTIONS (4)
  - Weight abnormal [None]
  - Diarrhoea [None]
  - Surgery [None]
  - Abdominal pain [None]

NARRATIVE: CASE EVENT DATE: 20200608
